FAERS Safety Report 21088934 (Version 1)
Quarter: 2022Q3

REPORT INFORMATION
  Report Type: Spontaneous
  Country: CA (occurrence: CA)
  Receive Date: 20220715
  Receipt Date: 20220715
  Transmission Date: 20221026
  Serious: Yes (Other)
  Sender: FDA-Public Use
  Company Number: CA-PFIZER INC-202200956793

PATIENT
  Age: 26 Year
  Sex: Female
  Weight: 92.971 kg

DRUGS (5)
  1. LYRICA [Suspect]
     Active Substance: PREGABALIN
     Indication: Lumbar radiculopathy
     Dosage: 75 MG (2 EVERY 1 DAYS)
     Route: 048
  2. LYRICA [Suspect]
     Active Substance: PREGABALIN
     Indication: Intervertebral disc protrusion
  3. CODEINE [Concomitant]
     Active Substance: CODEINE
     Dosage: UNK
     Route: 065
  4. OXYCODONE [Concomitant]
     Active Substance: OXYCODONE
     Dosage: UNK
  5. VYVANSE [Concomitant]
     Active Substance: LISDEXAMFETAMINE DIMESYLATE
     Dosage: UNK

REACTIONS (17)
  - Anxiety [Unknown]
  - Body temperature fluctuation [Unknown]
  - Chills [Unknown]
  - Decreased appetite [Unknown]
  - Depression [Unknown]
  - Headache [Unknown]
  - Heart rate increased [Unknown]
  - Hyperhidrosis [Unknown]
  - Lethargy [Unknown]
  - Muscle spasms [Unknown]
  - Muscle twitching [Unknown]
  - Muscular weakness [Unknown]
  - Nausea [Unknown]
  - Neuralgia [Unknown]
  - Suicidal ideation [Unknown]
  - Visual impairment [Unknown]
  - Withdrawal syndrome [Unknown]
